FAERS Safety Report 16346340 (Version 2)
Quarter: 2019Q2

REPORT INFORMATION
  Report Type: Spontaneous
  Country: US (occurrence: US)
  Receive Date: 20190523
  Receipt Date: 20190605
  Transmission Date: 20190711
  Serious: No
  Sender: FDA-Public Use
  Company Number: US-PFIZER INC-2019219019

PATIENT
  Age: 67 Year
  Sex: Female
  Weight: 102.6 kg

DRUGS (1)
  1. LYRICA [Suspect]
     Active Substance: PREGABALIN
     Indication: NEUROPATHY PERIPHERAL
     Dosage: 75 MG, 2 TO 3 TIMES DAY
     Route: 048
     Dates: end: 201905

REACTIONS (1)
  - Pain [Unknown]
